FAERS Safety Report 7766037-X (Version None)
Quarter: 2011Q3

REPORT INFORMATION
  Report Type: 
  Country: None (occurrence: None)
  Receive Date: 20110921
  Receipt Date: 20110915
  Transmission Date: 20111222
  Serious: Yes (Life-Threatening, Hospitalization, Other)
  Sender: FDA-Public Use
  Company Number: US-CELGENEUS-163-21880-11051931

PATIENT
  Sex: Male

DRUGS (5)
  1. ANTIBIOTICS [Suspect]
  2. EPOETIN [Concomitant]
     Indication: FULL BLOOD COUNT DECREASED
     Route: 050
     Dates: start: 20110425, end: 20110630
  3. REVLIMID [Suspect]
     Dosage: 5 MILLIGRAM
     Route: 048
     Dates: start: 20110614
  4. REVLIMID [Suspect]
     Indication: MULTIPLE MYELOMA
     Dosage: 10 MILLIGRAM
     Route: 048
     Dates: start: 20110317, end: 20110411
  5. ARANESP [Concomitant]
     Indication: FULL BLOOD COUNT DECREASED
     Dosage: 50 MICROGRAM
     Route: 058
     Dates: start: 20110707

REACTIONS (3)
  - WHITE BLOOD CELL COUNT DECREASED [None]
  - THROMBOCYTOPENIA [None]
  - BACTERAEMIA [None]
